FAERS Safety Report 8484374 (Version 4)
Quarter: 2013Q3

REPORT INFORMATION
  Report Type: Report from Study
  Country: JP (occurrence: JP)
  Receive Date: 20120330
  Receipt Date: 20130729
  Transmission Date: 20140515
  Serious: Yes (Hospitalization, Other)
  Sender: FDA-Public Use
  Company Number: JP-VERTEX PHARMACEUTICALS INC.-AE-2012-004355

PATIENT
  Age: 64 Year
  Sex: Female

DRUGS (12)
  1. VX-950 (TELAPREVIR) [Suspect]
     Indication: CHRONIC HEPATITIS C
     Dosage: 2250 MG, QD
     Route: 048
     Dates: start: 20120206, end: 20120227
  2. PEGINTERFERON ALFA-2B [Suspect]
     Indication: CHRONIC HEPATITIS C
     Dosage: 1.27 ?G/KG, QW
     Route: 058
     Dates: start: 20120206, end: 20120212
  3. PEGINTERFERON ALFA-2B [Suspect]
     Dosage: 0.95 ?G/KG, QW
     Route: 058
     Dates: start: 20120213, end: 20120220
  4. RIBAVIRIN [Concomitant]
     Dosage: 400 MG, QD
     Route: 048
     Dates: start: 20120206, end: 20120220
  5. RIBAVIRIN [Concomitant]
     Dosage: 200 MG, QD
     Route: 048
     Dates: start: 20120221, end: 20120227
  6. AMARYL [Concomitant]
     Dosage: 1 MG, QD
     Route: 048
  7. ALLEGRA [Concomitant]
     Dosage: 120 MG, QD
     Route: 048
     Dates: start: 20120206, end: 20120228
  8. TAKEPRON [Concomitant]
     Dosage: 15 MG, QD
     Route: 048
     Dates: start: 20120206
  9. LOXONIN [Concomitant]
     Dosage: 120 MG, QD
     Route: 048
     Dates: start: 20120206, end: 20120225
  10. THYRADIN S [Concomitant]
     Dosage: 25 ?G, QD
     Route: 048
  11. PREDONINE [Concomitant]
     Dosage: 10 MG, QD
     Route: 048
     Dates: start: 20120217, end: 20120222
  12. METHADERM [Concomitant]
     Dosage: UNK, PRN
     Route: 061
     Dates: start: 20120217, end: 20120217

REACTIONS (2)
  - Psychiatric symptom [Recovered/Resolved]
  - Platelet count decreased [Recovered/Resolved]
